FAERS Safety Report 17470043 (Version 1)
Quarter: 2020Q1

REPORT INFORMATION
  Report Type: Spontaneous
  Country: CA (occurrence: CA)
  Receive Date: 20200227
  Receipt Date: 20200227
  Transmission Date: 20200409
  Serious: Yes (Hospitalization)
  Sender: FDA-Public Use
  Company Number: CA-NOVOPROD-713922

PATIENT
  Age: 2 Month
  Sex: Female

DRUGS (2)
  1. NIASTASE [Suspect]
     Active Substance: COAGULATION FACTOR VIIA RECOMBINANT HUMAN
     Indication: HAEMOPHILIA
     Dosage: 1 MG, QD
     Route: 042
     Dates: start: 20200212
  2. NIASTASE [Suspect]
     Active Substance: COAGULATION FACTOR VIIA RECOMBINANT HUMAN
     Indication: FACTOR VII DEFICIENCY

REACTIONS (1)
  - Meningitis [Unknown]
